FAERS Safety Report 12440533 (Version 2)
Quarter: 2016Q3

REPORT INFORMATION
  Report Type: Spontaneous
  Country: FR (occurrence: FR)
  Receive Date: 20160606
  Receipt Date: 20160802
  Transmission Date: 20161109
  Serious: Yes (Life-Threatening)
  Sender: FDA-Public Use
  Company Number: FR-ASTRAZENECA-2016SE59671

PATIENT
  Age: 304 Month
  Sex: Female

DRUGS (3)
  1. ZOLOFT [Suspect]
     Active Substance: SERTRALINE HYDROCHLORIDE
     Route: 048
  2. XEROQUEL [Suspect]
     Active Substance: QUETIAPINE FUMARATE
     Route: 048
     Dates: start: 201601, end: 20160427
  3. LYSANXIA [Suspect]
     Active Substance: PRAZEPAM
     Route: 048

REACTIONS (12)
  - Clostridium colitis [Unknown]
  - Nausea [Unknown]
  - Abdominal pain [Unknown]
  - Delirium [Unknown]
  - Procalcitonin increased [Recovering/Resolving]
  - Pyrexia [Recovered/Resolved]
  - Pseudomembranous colitis [Unknown]
  - Blood pressure decreased [Recovered/Resolved]
  - Colitis ischaemic [Recovering/Resolving]
  - Off label use [Unknown]
  - Vomiting [Unknown]
  - Persecutory delusion [Unknown]

NARRATIVE: CASE EVENT DATE: 201601
